FAERS Safety Report 10303483 (Version 2)
Quarter: 2014Q3

REPORT INFORMATION
  Report Type: Spontaneous
  Country: US (occurrence: US)
  Receive Date: 20140714
  Receipt Date: 20140824
  Transmission Date: 20150326
  Serious: No
  Sender: FDA-Public Use
  Company Number: US-TEVA-493329USA

PATIENT
  Age: 60 Year

DRUGS (1)
  1. QNASL [Suspect]
     Active Substance: BECLOMETHASONE DIPROPIONATE
     Route: 045

REACTIONS (2)
  - Device malfunction [Unknown]
  - Drug effect decreased [Recovered/Resolved]

NARRATIVE: CASE EVENT DATE: 20140621
